FAERS Safety Report 9290462 (Version 2)
Quarter: 2013Q2

REPORT INFORMATION
  Report Type: Spontaneous
  Country: JP (occurrence: JP)
  Receive Date: 20130515
  Receipt Date: 20130528
  Transmission Date: 20140414
  Serious: Yes (Other)
  Sender: FDA-Public Use
  Company Number: JP-UCBSA-084471

PATIENT
  Age: 63 Year
  Sex: Female

DRUGS (3)
  1. CIMZIA [Suspect]
     Indication: RHEUMATOID ARTHRITIS
     Route: 058
     Dates: start: 20130405
  2. PROGRAF [Concomitant]
     Indication: RHEUMATOID ARTHRITIS
     Route: 048
  3. AZULFIDINE-EN [Concomitant]
     Route: 048

REACTIONS (3)
  - Herpes zoster [Recovered/Resolved]
  - Night sweats [Recovered/Resolved]
  - Injection site erythema [Recovered/Resolved]
